FAERS Safety Report 8688026 (Version 3)
Quarter: 2014Q3

REPORT INFORMATION
  Report Type: Report from Study
  Country: CA (occurrence: CA)
  Receive Date: 20120727
  Receipt Date: 20140711
  Transmission Date: 20150326
  Serious: Yes (Hospitalization, Disabling)
  Sender: FDA-Public Use
  Company Number: CA-TEVA-350577USA

PATIENT
  Age: 84 Year
  Sex: Female
  Weight: 57 kg

DRUGS (9)
  1. DIMENHYDRINATE. [Concomitant]
     Active Substance: DIMENHYDRINATE
     Indication: ABDOMINAL DISCOMFORT
     Dosage: 25-50 MG (EVERY 6 HOURS AS NEEDED)
     Dates: start: 20120519
  2. CALCIUM MAGNESIUM ZINC [Concomitant]
     Active Substance: CALCIUM\MAGNESIUM\ZINC
     Indication: VITAMIN SUPPLEMENTATION
     Dosage: 333MG/116.66MG/16.66MG
     Route: 048
     Dates: start: 2007
  3. CURCUMA LONGA RHIZOME [Concomitant]
     Indication: VITAMIN SUPPLEMENTATION
     Dosage: 3 DOSAGE FORMS DAILY;
     Route: 048
     Dates: start: 20120501
  4. PARACETAMOL [Concomitant]
     Active Substance: ACETAMINOPHEN
     Indication: BACK PAIN
     Dosage: 1 TO 2 TABLETS (AS NEEDED)
     Route: 048
     Dates: start: 20120531
  5. ERGOCALCIFEROL. [Concomitant]
     Active Substance: ERGOCALCIFEROL
     Indication: VITAMIN SUPPLEMENTATION
     Dosage: 1000 - 6000 IU
     Route: 048
     Dates: start: 20120501
  6. TREANDA [Suspect]
     Active Substance: BENDAMUSTINE HYDROCHLORIDE
     Indication: NON-HODGKIN^S LYMPHOMA UNSPECIFIED HISTOLOGY INDOLENT
     Route: 042
     Dates: start: 20120523
  7. ZOPICLONE [Concomitant]
     Active Substance: ZOPICLONE
     Indication: INSOMNIA
     Dosage: 7.5 MILLIGRAM DAILY;
     Route: 048
     Dates: start: 2009
  8. PANADEINE CO [Concomitant]
     Active Substance: ACETAMINOPHEN\CODEINE PHOSPHATE
     Indication: BACK PAIN
     Dosage: 1-2 TABLETS (AS NEEDED)
     Route: 048
     Dates: start: 20120610
  9. RISEDRONATE SODIUM. [Concomitant]
     Active Substance: RISEDRONATE SODIUM
     Indication: OSTEOPOROSIS
     Dosage: .7143 MILLIGRAM DAILY;
     Route: 048
     Dates: start: 200711

REACTIONS (2)
  - Peripheral motor neuropathy [Not Recovered/Not Resolved]
  - Urinary retention [Recovered/Resolved]

NARRATIVE: CASE EVENT DATE: 20120711
